FAERS Safety Report 8776950 (Version 3)
Quarter: 2012Q4

REPORT INFORMATION
  Report Type: 
  Country: US (occurrence: US)
  Receive Date: 20120911
  Receipt Date: 20121015
  Transmission Date: 20130627
  Serious: Yes (Hospitalization, Disabling, Other)
  Sender: FDA-Public Use
  Company Number: US-009507513-1202USA03887

PATIENT

DRUGS (8)
  1. FOSAMAX [Suspect]
     Indication: OSTEOPOROSIS
     Dosage: 70 mg, QW
     Route: 048
     Dates: start: 2000, end: 2005
  2. FOSAMAX [Suspect]
     Dosage: 5 mg, UNK
     Route: 048
     Dates: start: 20000313
  3. FOSAMAX [Suspect]
     Dosage: 10 mg, UNK
     Route: 048
  4. FOSAMAX D [Suspect]
     Indication: OSTEOPOROSIS
     Dosage: 70/2800
     Route: 048
     Dates: start: 2005, end: 2008
  5. EFFEXOR [Concomitant]
  6. ST JOHNS WORT [Concomitant]
  7. KAVA [Concomitant]
  8. PREMARIN [Concomitant]
     Dosage: UNK
     Dates: start: 1997, end: 2006

REACTIONS (43)
  - Femur fracture [Unknown]
  - Low turnover osteopathy [Unknown]
  - Fear [Unknown]
  - Stress fracture [Unknown]
  - Stress fracture [Unknown]
  - Fall [Not Recovered/Not Resolved]
  - Back disorder [Not Recovered/Not Resolved]
  - Multiple sclerosis [Unknown]
  - Osteonecrosis [Unknown]
  - Night sweats [Unknown]
  - Bone fragmentation [Unknown]
  - Stress fracture [Unknown]
  - Adverse event [Not Recovered/Not Resolved]
  - Meniscus injury [Unknown]
  - Chondromalacia [Unknown]
  - Fall [Unknown]
  - Bladder disorder [Unknown]
  - Carpal tunnel syndrome [Unknown]
  - Urinary tract infection [Unknown]
  - Sexual dysfunction [Unknown]
  - Post lumbar puncture syndrome [Unknown]
  - Paraesthesia [Unknown]
  - Hyperventilation [Unknown]
  - Adverse event [Unknown]
  - Stress urinary incontinence [Unknown]
  - Rib fracture [Unknown]
  - Tibia fracture [Unknown]
  - Osteoarthritis [Unknown]
  - Tenosynovitis [Unknown]
  - Haemangioma [Unknown]
  - Spondylolisthesis [Unknown]
  - Intervertebral disc protrusion [Unknown]
  - Spinal osteoarthritis [Unknown]
  - Vertebral foraminal stenosis [Unknown]
  - Lipomatosis [Unknown]
  - Ankle impingement [Unknown]
  - Device failure [Unknown]
  - Synovitis [Not Recovered/Not Resolved]
  - Stress fracture [Unknown]
  - Synovial cyst [Unknown]
  - Avulsion fracture [Unknown]
  - Tendon disorder [Unknown]
  - Ankle fracture [Unknown]
